FAERS Safety Report 8230933-X (Version None)
Quarter: 2012Q1

REPORT INFORMATION
  Report Type: 
  Country: None (occurrence: None)
  Receive Date: 20120323
  Receipt Date: 20120313
  Transmission Date: 20120608
  Serious: Yes (Other)
  Sender: FDA-Public Use
  Company Number: US-BAYER-2012-025198

PATIENT
  Sex: Female

DRUGS (1)
  1. MIRENA [Suspect]
     Indication: CONTRACEPTION
     Dosage: 20 MCG/24HR, CONT

REACTIONS (8)
  - WEIGHT INCREASED [None]
  - MIGRAINE [None]
  - HYPOAESTHESIA [None]
  - PALPITATIONS [None]
  - MALNUTRITION [None]
  - BREAST SWELLING [None]
  - FATIGUE [None]
  - CENTRAL OBESITY [None]
